FAERS Safety Report 18862853 (Version 19)
Quarter: 2024Q1

REPORT INFORMATION
  Report Type: Report from Study
  Country: CA (occurrence: CA)
  Receive Date: 20210208
  Receipt Date: 20240227
  Transmission Date: 20240410
  Serious: Yes (Hospitalization, Other)
  Sender: FDA-Public Use
  Company Number: CA-TAKEDA-CA202030462

PATIENT
  Age: 11 Year
  Sex: Male

DRUGS (5)
  1. HUMAN IMMUNOGLOBULIN G [Suspect]
     Active Substance: HUMAN IMMUNOGLOBULIN G
     Indication: Primary immunodeficiency syndrome
     Dosage: 5 GRAM, 1/WEEK
     Route: 058
     Dates: start: 20180911
  2. HUMAN IMMUNOGLOBULIN G [Suspect]
     Active Substance: HUMAN IMMUNOGLOBULIN G
     Dosage: 6 GRAM, 1/WEEK
     Route: 058
  3. HUMAN IMMUNOGLOBULIN G [Suspect]
     Active Substance: HUMAN IMMUNOGLOBULIN G
     Dosage: 6 GRAM, 1/WEEK
     Route: 050
  4. HUMAN IMMUNOGLOBULIN G [Suspect]
     Active Substance: HUMAN IMMUNOGLOBULIN G
     Dosage: UNK, 1/WEEK
     Route: 058
  5. HIZENTRA [Concomitant]
     Active Substance: HUMAN IMMUNOGLOBULIN G
     Indication: Product used for unknown indication
     Dosage: 10 MILLILITER, UNKNOWN
     Route: 065
     Dates: start: 20170717, end: 20180904

REACTIONS (47)
  - Arnold-Chiari malformation [Not Recovered/Not Resolved]
  - Central nervous system infection [Unknown]
  - Cyst [Unknown]
  - Hydrocephalus [Unknown]
  - Aspiration [Unknown]
  - Diaphragmatic paralysis [Unknown]
  - Abnormal clotting factor [Unknown]
  - Palatal disorder [Unknown]
  - Autoimmune neutropenia [Not Recovered/Not Resolved]
  - Post procedural infection [Not Recovered/Not Resolved]
  - Cerebral haemorrhage [Unknown]
  - Scoliosis [Recovering/Resolving]
  - Feeding disorder [Not Recovered/Not Resolved]
  - Full blood count decreased [Not Recovered/Not Resolved]
  - Splenomegaly [Not Recovered/Not Resolved]
  - Granulocytes abnormal [Not Recovered/Not Resolved]
  - Neutrophil count abnormal [Not Recovered/Not Resolved]
  - White blood cell count abnormal [Not Recovered/Not Resolved]
  - Gastric volvulus [Unknown]
  - Seizure [Not Recovered/Not Resolved]
  - Swelling [Not Recovered/Not Resolved]
  - Pyrexia [Not Recovered/Not Resolved]
  - Vomiting [Not Recovered/Not Resolved]
  - Diarrhoea [Not Recovered/Not Resolved]
  - Congenital thrombocyte disorder [Unknown]
  - Weight decreased [Unknown]
  - Blood immunoglobulin G decreased [Unknown]
  - COVID-19 [Recovering/Resolving]
  - Impaired driving ability [Not Recovered/Not Resolved]
  - Decubitus ulcer [Recovering/Resolving]
  - Infection [Unknown]
  - Platelet count abnormal [Unknown]
  - Device infusion issue [Recovered/Resolved]
  - Needle issue [Not Recovered/Not Resolved]
  - Infusion site haemorrhage [Recovered/Resolved]
  - Insomnia [Unknown]
  - Oropharyngeal pain [Recovering/Resolving]
  - Abdominal pain upper [Not Recovered/Not Resolved]
  - Hyperhidrosis [Not Recovered/Not Resolved]
  - Infusion site bruising [Recovered/Resolved]
  - Fatigue [Recovering/Resolving]
  - Platelet count decreased [Recovering/Resolving]
  - Lip blister [Recovering/Resolving]
  - Viral infection [Unknown]
  - Decreased appetite [Unknown]
  - Incorrect product administration duration [Not Recovered/Not Resolved]
  - Wrong technique in device usage process [Recovering/Resolving]

NARRATIVE: CASE EVENT DATE: 20200908
